FAERS Safety Report 4553662-2 (Version None)
Quarter: 2004Q4

REPORT INFORMATION
  Report Type: 
  Country: None (occurrence: None)
  Receive Date: 20041227
  Receipt Date: 20040510
  Transmission Date: 20050328
  Serious: Yes (Life-Threatening, Hospitalization, Other)
  Sender: FDA-Public Use
  Company Number: US-JNJFOC-20040402278

PATIENT
  Age: 72 Year
  Sex: Male
  Weight: 96.1626 kg

DRUGS (10)
  1. REOPRO [Suspect]
     Indication: PROPHYLAXIS
     Dosage: INTRAVENOUS
     Route: 042
     Dates: start: 20040315
  2. TRISENOX [Suspect]
     Indication: MYELODYSPLASTIC SYNDROME
     Dosage: 30 MG, IN 1 DAY
     Dates: start: 20040308, end: 20040312
  3. PLAVIX [Suspect]
     Indication: PROPHYLAXIS
     Dates: start: 20040315
  4. CELEBREX [Concomitant]
  5. COREG [Concomitant]
  6. FLUOXETINE [Concomitant]
  7. HYZAAR [Concomitant]
  8. SYNTHROID [Concomitant]
  9. AVANDIA [Concomitant]
  10. FUROSEMIDE [Concomitant]

REACTIONS (1)
  - PULMONARY HAEMORRHAGE [None]
